FAERS Safety Report 6121115-6 (Version None)
Quarter: 2009Q1

REPORT INFORMATION
  Report Type: 
  Country: None (occurrence: None)
  Receive Date: 20090312
  Receipt Date: 20090312
  Transmission Date: 20090719
  Serious: No
  Sender: FDA-Public Use
  Company Number: None

PATIENT
  Age: 30 Year
  Sex: Male
  Weight: 77.5651 kg

DRUGS (1)
  1. BUSPIRONE HCL [Suspect]
     Indication: ANXIETY
     Dosage: 20MG BID PO
     Route: 048
     Dates: start: 20090212, end: 20090312

REACTIONS (1)
  - SOMNOLENCE [None]
